FAERS Safety Report 17604248 (Version 1)
Quarter: 2020Q1

REPORT INFORMATION
  Report Type: Spontaneous
  Country: AU (occurrence: AU)
  Receive Date: 20200331
  Receipt Date: 20200331
  Transmission Date: 20200409
  Serious: Yes (Hospitalization, Other)
  Sender: FDA-Public Use
  Company Number: AU-SA-2020SA072507

PATIENT
  Age: 40 Year
  Sex: Female

DRUGS (5)
  1. CLEXANE [Suspect]
     Active Substance: ENOXAPARIN SODIUM
     Dosage: 60 MG, QD
  2. SOLIRIS [Suspect]
     Active Substance: ECULIZUMAB
     Indication: PAROXYSMAL NOCTURNAL HAEMOGLOBINURIA
     Dosage: UNK
     Dates: start: 201207
  3. SOLIRIS [Suspect]
     Active Substance: ECULIZUMAB
     Dosage: 900 MG (INTERVAL: 2.0000000000 WEEK)
  4. SOLIRIS [Suspect]
     Active Substance: ECULIZUMAB
     Dosage: 900 MG (INTERVAL: 2.0000000000 WEEK)
  5. CLEXANE [Suspect]
     Active Substance: ENOXAPARIN SODIUM
     Indication: BUDD-CHIARI SYNDROME
     Dosage: 200 MG

REACTIONS (20)
  - Acute kidney injury [Recovered/Resolved]
  - Blood loss anaemia [Unknown]
  - Prothrombin time prolonged [Unknown]
  - Ureteric obstruction [Unknown]
  - Blood lactate dehydrogenase increased [Unknown]
  - Vomiting [Recovered/Resolved]
  - Blood pressure increased [Unknown]
  - Abdominal wall haematoma [Unknown]
  - Diarrhoea [Unknown]
  - Reticulocyte count increased [Unknown]
  - Haematocrit decreased [Unknown]
  - Platelet count decreased [Unknown]
  - Haematuria [Unknown]
  - Liver disorder [Unknown]
  - Prothrombin time ratio increased [Unknown]
  - Haptoglobin decreased [Unknown]
  - Pain [Unknown]
  - Red blood cell count decreased [Unknown]
  - Retroperitoneal haematoma [Unknown]
  - Bladder irritation [Unknown]

NARRATIVE: CASE EVENT DATE: 20191220
